FAERS Safety Report 18776713 (Version 2)
Quarter: 2021Q1

REPORT INFORMATION
  Report Type: Report from Study
  Country: MX (occurrence: MX)
  Receive Date: 20210122
  Receipt Date: 20210128
  Transmission Date: 20210419
  Serious: Yes (Other)
  Sender: FDA-Public Use
  Company Number: MX-UCBSA-2021002093

PATIENT
  Sex: Male
  Weight: 65 kg

DRUGS (3)
  1. LEVETIRACETAM. [Concomitant]
     Active Substance: LEVETIRACETAM
     Indication: SEIZURE
     Dosage: 500 MILLIGRAM, 2X/DAY (BID)
     Route: 048
  2. FRISIUM [Concomitant]
     Active Substance: CLOBAZAM
     Indication: EPILEPSY
     Dosage: 10 MILLIGRAM, 2X/DAY (BID)
     Route: 048
     Dates: end: 2020
  3. BRIVARACETAM [Suspect]
     Active Substance: BRIVARACETAM
     Indication: EPILEPSY
     Dosage: 100 MILLIGRAM, ONCE DAILY (QD)
     Route: 048

REACTIONS (2)
  - Off label use [Unknown]
  - Seizure [Recovered/Resolved]
